FAERS Safety Report 18994950 (Version 2)
Quarter: 2021Q3

REPORT INFORMATION
  Report Type: Spontaneous
  Country: JP (occurrence: JP)
  Receive Date: 20210311
  Receipt Date: 20210920
  Transmission Date: 20211014
  Serious: Yes (Life-Threatening, Hospitalization, Other)
  Sender: FDA-Public Use
  Company Number: JP-ROCHE-2787539

PATIENT
  Age: 6 Decade
  Sex: Male
  Weight: 72.4 kg

DRUGS (7)
  1. AVASTIN [Suspect]
     Active Substance: BEVACIZUMAB
     Indication: HEPATOCELLULAR CARCINOMA
     Route: 041
     Dates: start: 20201229, end: 20210209
  2. MAGMITT [Concomitant]
     Active Substance: MAGNESIUM OXIDE
     Route: 048
  3. ZOLPIDEM TARTRATE. [Concomitant]
     Active Substance: ZOLPIDEM TARTRATE
     Route: 048
  4. URSODEOXYCHOLIC ACID [Concomitant]
     Active Substance: URSODIOL
     Route: 048
  5. TECENTRIQ [Suspect]
     Active Substance: ATEZOLIZUMAB
     Indication: HEPATOCELLULAR CARCINOMA
     Route: 041
     Dates: start: 20201229, end: 20210209
  6. FEBURIC [Concomitant]
     Active Substance: FEBUXOSTAT
     Route: 048
  7. DIQUAS [Concomitant]
     Active Substance: DIQUAFOSOL TETRASODIUM
     Route: 047

REACTIONS (4)
  - Aortic dissection [Recovering/Resolving]
  - Hypothyroidism [Not Recovered/Not Resolved]
  - Epistaxis [Recovering/Resolving]
  - Erythema multiforme [Unknown]

NARRATIVE: CASE EVENT DATE: 2021
